FAERS Safety Report 17369968 (Version 1)
Quarter: 2020Q1

REPORT INFORMATION
  Report Type: Spontaneous
  Country: FI (occurrence: FI)
  Receive Date: 20200205
  Receipt Date: 20200205
  Transmission Date: 20200409
  Serious: Yes (Other)
  Sender: FDA-Public Use
  Company Number: FI-TEVA-2020-FI-1181595

PATIENT
  Sex: Female

DRUGS (1)
  1. STELLA (ZOLPIDEM TARTRATE) [Suspect]
     Active Substance: ZOLPIDEM TARTRATE
     Indication: INSOMNIA

REACTIONS (3)
  - Hallucination, visual [Unknown]
  - Dizziness [Unknown]
  - Seizure [Unknown]

NARRATIVE: CASE EVENT DATE: 20200117
